FAERS Safety Report 9216222 (Version 1)
Quarter: 2013Q2

REPORT INFORMATION
  Report Type: Spontaneous
  Country: TR (occurrence: None)
  Receive Date: 20130403
  Receipt Date: 20130403
  Transmission Date: 20140414
  Serious: Yes (Other)
  Sender: FDA-Public Use
  Company Number: 7200967

PATIENT
  Age: 39 Year
  Sex: Female
  Weight: 78 kg

DRUGS (4)
  1. EUTHYROX [Suspect]
     Dosage: 200  MCG,  1  IN  1  D,  ORAL???/??/2006  -  ONGOING
     Route: 048
     Dates: start: 2006
  2. REBIF (INTERFERON BETA-1A) [Suspect]
     Dosage: 44  MCG,  3  IN  1  WK,  SUBCUTANEOUS?07/??/2008  -  ONGOING
     Route: 058
     Dates: start: 200807
  3. SUPRAFEN [Suspect]
     Dosage: 400  MG,  3  IN  1  WK,  ORAL?07/??/2008  -  ONGOING
     Route: 048
     Dates: start: 200807
  4. BENEXOL  (VITAMINES-B-LABAZ) [Concomitant]

REACTIONS (1)
  - Blood thyroid stimulating hormone increased [None]
